FAERS Safety Report 25586466 (Version 1)
Quarter: 2025Q3

REPORT INFORMATION
  Report Type: Spontaneous
  Country: US (occurrence: US)
  Receive Date: 20250721
  Receipt Date: 20250721
  Transmission Date: 20251020
  Serious: Yes (Hospitalization, Other)
  Sender: PURDUE
  Company Number: US-PURDUE-USA-2025-0319023

PATIENT
  Age: 35 Year
  Sex: Female

DRUGS (2)
  1. DEXTROAMPHETAMINE SACCHARATE, AMPHETAMINE ASPARTATE, DEXTROAMPHETAMINE [Suspect]
     Active Substance: AMPHETAMINE ASPARTATE\AMPHETAMINE SULFATE\DEXTROAMPHETAMINE SACCHARATE\DEXTROAMPHETAMINE SULFATE
     Indication: Product used for unknown indication
     Route: 048
  2. CANNABIS SATIVA SUBSP. INDICA TOP [Suspect]
     Active Substance: CANNABIS SATIVA SUBSP. INDICA TOP
     Indication: Product used for unknown indication
     Route: 065

REACTIONS (10)
  - Pulmonary hypertension [Unknown]
  - Unresponsive to stimuli [Unknown]
  - Acute respiratory failure [Unknown]
  - Hypervolaemia [Unknown]
  - Cardiac failure [Unknown]
  - Cardiogenic shock [Unknown]
  - Septic shock [Unknown]
  - Enterocolitis [Unknown]
  - Adrenal insufficiency [Unknown]
  - Substance abuse [Unknown]
